FAERS Safety Report 6337671-9 (Version None)
Quarter: 2009Q3

REPORT INFORMATION
  Report Type: 
  Country: None (occurrence: None)
  Receive Date: 20090902
  Receipt Date: 20090824
  Transmission Date: 20100115
  Serious: Yes (Other)
  Sender: FDA-Public Use
  Company Number: US-ALEXION-A200900659

PATIENT
  Sex: Female

DRUGS (4)
  1. SOLIRIS [Suspect]
     Indication: PAROXYSMAL NOCTURNAL HAEMOGLOBINURIA
     Dosage: 600 MG, QW
     Route: 042
     Dates: start: 20090806
  2. PERCOCET [Concomitant]
     Indication: PAIN
     Dosage: 5/325 MG, 1-2 TABS, Q4H, PRN
     Route: 048
  3. IRON [Concomitant]
     Indication: ANAEMIA
     Dosage: 325 MG, QD
     Route: 048
  4. FOLIC ACID [Concomitant]
     Indication: PAROXYSMAL NOCTURNAL HAEMOGLOBINURIA
     Dosage: 1 MG, QD
     Route: 048

REACTIONS (6)
  - APHASIA [None]
  - CHILLS [None]
  - PETIT MAL EPILEPSY [None]
  - PRURITUS [None]
  - TREMOR [None]
  - UNRESPONSIVE TO STIMULI [None]
